FAERS Safety Report 9846316 (Version 1)
Quarter: 2014Q1

REPORT INFORMATION
  Report Type: Spontaneous
  Country: GB (occurrence: GB)
  Receive Date: 20140127
  Receipt Date: 20140127
  Transmission Date: 20141002
  Serious: Yes (Disabling)
  Sender: FDA-Public Use
  Company Number: GB-IPSEN BIOPHARMACEUTICALS, INC.-2014-0374

PATIENT
  Age: 25 Year
  Sex: Male
  Weight: 63 kg

DRUGS (4)
  1. DYSPORT [Suspect]
     Indication: MUSCLE SPASTICITY
     Dosage: NOT REPORTED
     Route: 030
     Dates: start: 20130731, end: 20130731
  2. OMEPRAZOLE [Concomitant]
     Indication: PRODUCT USED FOR UNKNOWN INDICATION
     Route: 048
  3. OXCARBAZEPINE [Concomitant]
     Indication: CONVULSION
     Dosage: NOT REPORTED
     Route: 048
     Dates: start: 201301
  4. TRIHEXYPHENIDYL [Concomitant]
     Indication: TREMOR
     Route: 048

REACTIONS (2)
  - Sensory loss [Recovered/Resolved]
  - Muscular weakness [Recovered/Resolved]
